FAERS Safety Report 9345689 (Version 1)
Quarter: 2013Q2

REPORT INFORMATION
  Report Type: Spontaneous
  Country: GB (occurrence: GB)
  Receive Date: 20130613
  Receipt Date: 20130613
  Transmission Date: 20140414
  Serious: Yes (Other)
  Sender: FDA-Public Use
  Company Number: PHHY2013GB059179

PATIENT
  Age: 60 Year
  Sex: Male

DRUGS (1)
  1. IMATINIB [Suspect]
     Indication: GASTROINTESTINAL STROMAL TUMOUR
     Dosage: 400 MG, ONCE DAILY

REACTIONS (3)
  - Peripheral sensory neuropathy [Recovering/Resolving]
  - Peripheral motor neuropathy [Recovering/Resolving]
  - Food interaction [Unknown]
